FAERS Safety Report 7564116-3 (Version None)
Quarter: 2011Q2

REPORT INFORMATION
  Report Type: 
  Country: None (occurrence: None)
  Receive Date: 20110622
  Receipt Date: 20110617
  Transmission Date: 20111010
  Serious: Yes (Other)
  Sender: FDA-Public Use
  Company Number: FR-PFIZER INC-2011005329

PATIENT
  Age: 67 Year
  Sex: Female

DRUGS (2)
  1. LYRICA [Suspect]
     Indication: FIBROMYALGIA
  2. LYRICA [Suspect]
     Indication: MUSCULOSKELETAL PAIN
     Dosage: UNK
     Dates: start: 20090101

REACTIONS (15)
  - CATARACT [None]
  - LACRIMATION INCREASED [None]
  - DIARRHOEA [None]
  - TOOTH DISORDER [None]
  - SUICIDAL IDEATION [None]
  - GASTROINTESTINAL DISORDER [None]
  - DRY EYE [None]
  - DECREASED APPETITE [None]
  - VISUAL IMPAIRMENT [None]
  - ORAL DISORDER [None]
  - DEAFNESS [None]
  - WEIGHT INCREASED [None]
  - BALANCE DISORDER [None]
  - SYNCOPE [None]
  - GENERAL PHYSICAL HEALTH DETERIORATION [None]
